FAERS Safety Report 8067919-4 (Version None)
Quarter: 2012Q1

REPORT INFORMATION
  Report Type: 
  Country: None (occurrence: None)
  Receive Date: 20120124
  Receipt Date: 20110909
  Transmission Date: 20120608
  Serious: No
  Sender: FDA-Public Use
  Company Number: US-AMGEN-USASP2011030471

PATIENT
  Sex: Female

DRUGS (14)
  1. LOVAZA [Concomitant]
  2. FOLIC ACID [Concomitant]
  3. WELCHOL [Concomitant]
  4. DIGOXIN [Concomitant]
  5. PREDNISONE [Concomitant]
  6. LIPITOR [Concomitant]
  7. CITRACAL                           /00471001/ [Concomitant]
  8. BENEFIBER                          /00677201/ [Concomitant]
  9. XGEVA [Suspect]
     Indication: METASTASES TO BONE
     Dosage: 120 MG, Q4WK
     Dates: start: 20110201
  10. METOPROLOL TARTRATE [Concomitant]
  11. XGEVA [Suspect]
  12. FASLODEX                           /01503001/ [Concomitant]
  13. ZOMETA [Concomitant]
  14. KLONOPIN [Concomitant]

REACTIONS (5)
  - ABDOMINAL DISTENSION [None]
  - GASTRIC DISORDER [None]
  - FLATULENCE [None]
  - IRRITABLE BOWEL SYNDROME [None]
  - ALOPECIA [None]
